FAERS Safety Report 20921598 (Version 2)
Quarter: 2022Q2

REPORT INFORMATION
  Report Type: Spontaneous
  Country: US (occurrence: US)
  Receive Date: 20220606
  Receipt Date: 20220629
  Transmission Date: 20220721
  Serious: No
  Sender: FDA-Public Use
  Company Number: US-BEH-2022146163

PATIENT
  Sex: Female

DRUGS (9)
  1. HIZENTRA [Suspect]
     Active Substance: HUMAN IMMUNOGLOBULIN G
     Indication: Immunodeficiency common variable
     Dosage: 16 GRAM, QW
     Route: 058
     Dates: start: 20180620
  2. CYMBALTA [Concomitant]
     Active Substance: DULOXETINE HYDROCHLORIDE
  3. DUPILUMAB [Concomitant]
     Active Substance: DUPILUMAB
  4. EPINEPHRINE [Concomitant]
     Active Substance: EPINEPHRINE
  5. EPINEPHRINE [Concomitant]
     Active Substance: EPINEPHRINE
  6. HUMIRA [Concomitant]
     Active Substance: ADALIMUMAB
  7. LYRICA [Concomitant]
     Active Substance: PREGABALIN
  8. PROVIGIL [Concomitant]
     Active Substance: MODAFINIL
  9. VICODIN [Concomitant]
     Active Substance: ACETAMINOPHEN\HYDROCODONE BITARTRATE

REACTIONS (1)
  - Bronchitis [Unknown]
